FAERS Safety Report 25649538 (Version 1)
Quarter: 2025Q3

REPORT INFORMATION
  Report Type: Report from Study
  Country: CA (occurrence: CA)
  Receive Date: 20250806
  Receipt Date: 20250806
  Transmission Date: 20251021
  Serious: Yes (Hospitalization, Other)
  Sender: SAMSUNG BIOEPIS
  Company Number: CA-SAMSUNG BIOEPIS-SB-2024-30265

PATIENT
  Age: 59 Year
  Sex: Female

DRUGS (3)
  1. RENFLEXIS [Suspect]
     Active Substance: INFLIXIMAB-ABDA
     Indication: Crohn^s disease
     Route: 042
     Dates: start: 20230331, end: 20240802
  2. RENFLEXIS [Suspect]
     Active Substance: INFLIXIMAB-ABDA
     Route: 042
     Dates: start: 20230331, end: 20240802
  3. METHOTREXATE [Concomitant]
     Active Substance: METHOTREXATE
     Indication: Product used for unknown indication

REACTIONS (18)
  - Infection [Unknown]
  - Arthritis bacterial [Unknown]
  - Pharyngitis streptococcal [Unknown]
  - Pain [Unknown]
  - Streptococcal infection [Unknown]
  - Inflammatory marker increased [Unknown]
  - Herpes zoster [Unknown]
  - Diarrhoea [Not Recovered/Not Resolved]
  - Back pain [Unknown]
  - Mental disorder [Unknown]
  - Malaise [Unknown]
  - Emotional distress [Unknown]
  - Crying [Unknown]
  - Sleep disorder [Unknown]
  - Abdominal distension [Unknown]
  - Flatulence [Unknown]
  - Abscess [Not Recovered/Not Resolved]
  - Off label use [Unknown]
